FAERS Safety Report 5144399-X (Version None)
Quarter: 2006Q4

REPORT INFORMATION
  Report Type: 
  Country: None (occurrence: None)
  Receive Date: 20061030
  Receipt Date: 20061013
  Transmission Date: 20070319
  Serious: Yes (Other)
  Sender: FDA-Public Use
  Company Number: US200610002757

PATIENT
  Age: 50 Year
  Sex: Female

DRUGS (4)
  1. CYMBALTA [Suspect]
     Dosage: 60 MG
     Dates: start: 20060501, end: 20060929
  2. HUMALOG [Suspect]
  3. LANTUS [Concomitant]
  4. FLUOXETINE HCL [Concomitant]

REACTIONS (3)
  - INTENTIONAL OVERDOSE [None]
  - PANCREATIC CARCINOMA [None]
  - SUICIDE ATTEMPT [None]
